FAERS Safety Report 8925879 (Version 2)
Quarter: 2012Q4

REPORT INFORMATION
  Report Type: 
  Country: US (occurrence: US)
  Receive Date: 20121126
  Receipt Date: 20121205
  Transmission Date: 20130627
  Serious: Yes (Death)
  Sender: FDA-Public Use
  Company Number: PHEH2012US022893

PATIENT
  Age: 77 Year
  Sex: Female
  Weight: 45.81 kg

DRUGS (1)
  1. SANDOSTATIN LAR DEPOT [Suspect]
     Indication: CARCINOID TUMOUR
     Dosage: 30 mg, every 28 days
     Route: 030
     Dates: start: 20100428, end: 20121009

REACTIONS (2)
  - Malignant neoplasm progression [Fatal]
  - Pain [Fatal]
